FAERS Safety Report 12356587 (Version 2)
Quarter: 2017Q4

REPORT INFORMATION
  Report Type: Spontaneous
  Country: US (occurrence: US)
  Receive Date: 20160511
  Receipt Date: 20171220
  Transmission Date: 20180320
  Serious: No
  Sender: FDA-Public Use
  Company Number: US-PFIZER INC-2015404610

PATIENT
  Age: 63 Year
  Sex: Female
  Weight: 118.7 kg

DRUGS (1)
  1. NIZATIDINE. [Suspect]
     Active Substance: NIZATIDINE
     Dosage: UNK

REACTIONS (6)
  - Pruritus [Unknown]
  - Rash [Unknown]
  - Multiple allergies [Unknown]
  - Euphoric mood [Unknown]
  - Dyspnoea [Unknown]
  - Drug hypersensitivity [Unknown]
